FAERS Safety Report 23102856 (Version 1)
Quarter: 2023Q4

REPORT INFORMATION
  Report Type: Spontaneous
  Country: US (occurrence: US)
  Receive Date: 20231025
  Receipt Date: 20231025
  Transmission Date: 20240109
  Serious: No
  Sender: FDA-Public Use
  Company Number: US-ELI_LILLY_AND_COMPANY-US202310012819

PATIENT

DRUGS (2)
  1. PIRTOBRUTINIB [Suspect]
     Active Substance: PIRTOBRUTINIB
     Indication: Chronic lymphocytic leukaemia
     Dosage: 200 MG, UNKNOWN
     Route: 065
     Dates: start: 202309
  2. PIRTOBRUTINIB [Suspect]
     Active Substance: PIRTOBRUTINIB
     Dosage: 100 MG, UNKNOWN
     Route: 065

REACTIONS (3)
  - Off label use [Unknown]
  - Platelet count decreased [Recovered/Resolved]
  - Contusion [Recovered/Resolved]

NARRATIVE: CASE EVENT DATE: 20230901
